FAERS Safety Report 24151605 (Version 1)
Quarter: 2024Q3

REPORT INFORMATION
  Report Type: Spontaneous
  Country: US (occurrence: US)
  Receive Date: 20240730
  Receipt Date: 20240730
  Transmission Date: 20241016
  Serious: No
  Sender: PERRIGO
  Company Number: US-PERRIGO-24US001622

PATIENT

DRUGS (16)
  1. LORATADINE [Suspect]
     Active Substance: LORATADINE
     Indication: Cough
     Dosage: UNKNOWN, UNKNOWN
     Route: 065
  2. LORATADINE [Suspect]
     Active Substance: LORATADINE
     Indication: Nasal congestion
  3. LORATADINE [Suspect]
     Active Substance: LORATADINE
     Indication: Perennial allergy
  4. ACYCLOVIR [Concomitant]
     Active Substance: ACYCLOVIR
     Indication: Herpes virus infection
     Dosage: UNK
     Route: 065
  5. SUDAFED [Concomitant]
     Active Substance: PSEUDOEPHEDRINE HYDROCHLORIDE
     Indication: Cough
     Dosage: UNK
     Route: 065
  6. SUDAFED [Concomitant]
     Active Substance: PSEUDOEPHEDRINE HYDROCHLORIDE
     Indication: Nasal congestion
  7. OCUVITE [Concomitant]
     Active Substance: VITAMINS
     Indication: Neovascular age-related macular degeneration
     Dosage: UNK
     Route: 065
  8. OCUVITE [Concomitant]
     Active Substance: VITAMINS
     Indication: Dry age-related macular degeneration
  9. CALCIUM\VITAMIN D [Concomitant]
     Active Substance: CALCIUM\VITAMIN D
     Indication: Product used for unknown indication
     Dosage: UNK
     Route: 065
  10. VITAMIN C [Concomitant]
     Active Substance: ASCORBIC ACID
     Indication: Product used for unknown indication
     Dosage: UNK
     Route: 065
  11. FISH OIL\OMEGA-3 FATTY ACIDS [Concomitant]
     Active Substance: FISH OIL\OMEGA-3 FATTY ACIDS
     Indication: Product used for unknown indication
     Dosage: UNK
     Route: 065
  12. HERBALS\TURMERIC [Concomitant]
     Active Substance: HERBALS\TURMERIC
     Indication: Product used for unknown indication
     Dosage: UNK
     Route: 065
  13. PROBIOTICS NOS [Concomitant]
     Active Substance: PROBIOTICS NOS
     Indication: Product used for unknown indication
     Dosage: UNK
     Route: 065
  14. DMG [N,N-DIMETHYLGLYCINE] [Concomitant]
     Indication: Product used for unknown indication
     Dosage: UNK
     Route: 065
  15. ADEMETIONINE [Concomitant]
     Active Substance: ADEMETIONINE
     Indication: Product used for unknown indication
     Dosage: UNK
     Route: 065
  16. MINOXIDIL [Concomitant]
     Active Substance: MINOXIDIL
     Indication: Alopecia
     Dosage: UNK
     Route: 061
     Dates: start: 2014, end: 20240211

REACTIONS (1)
  - Off label use [Unknown]
